FAERS Safety Report 17460476 (Version 1)
Quarter: 2020Q1

REPORT INFORMATION
  Report Type: Spontaneous
  Country: US (occurrence: US)
  Receive Date: 20200213
  Receipt Date: 20200213
  Transmission Date: 20200409
  Serious: No
  Sender: FDA-Public Use
  Company Number: None

PATIENT
  Age: 34 Month
  Sex: Male

DRUGS (1)
  1. VIGABATRIN 500MG PWD [Suspect]
     Active Substance: VIGABATRIN
     Indication: EPILEPSY
     Dosage: ?          OTHER DOSE:2 PKTS;OTHER ROUTE:VIA G-TUBE?
     Dates: start: 20181212

REACTIONS (1)
  - Constipation [None]

NARRATIVE: CASE EVENT DATE: 20200212
